FAERS Safety Report 5888463-6 (Version None)
Quarter: 2008Q3

REPORT INFORMATION
  Report Type: 
  Country: None (occurrence: None)
  Receive Date: 20080918
  Receipt Date: 20080905
  Transmission Date: 20090109
  Serious: Yes (Hospitalization)
  Sender: FDA-Public Use
  Company Number: US-ELI_LILLY_AND_COMPANY-US200808003236

PATIENT
  Sex: Male

DRUGS (2)
  1. ZYPREXA [Suspect]
     Dosage: 80 MG, DAILY (1/D)
  2. ZYPREXA [Suspect]
     Dosage: 20 MG, UNK

REACTIONS (2)
  - GASTROINTESTINAL TUBE INSERTION [None]
  - OVERDOSE [None]
